FAERS Safety Report 14188313 (Version 1)
Quarter: 2017Q4

REPORT INFORMATION
  Report Type: Spontaneous
  Country: US (occurrence: US)
  Receive Date: 20171114
  Receipt Date: 20171114
  Transmission Date: 20180321
  Serious: Yes (Other)
  Sender: FDA-Public Use
  Company Number: US-BAUSCH-BL-2017-026670

PATIENT
  Age: 59 Year
  Sex: Female

DRUGS (2)
  1. BEPREVE [Suspect]
     Active Substance: BEPOTASTINE BESILATE
     Indication: NASAL DECONGESTION THERAPY
     Dosage: ONE DROP IN THE RIGHT EYE
     Route: 047
     Dates: start: 20170824, end: 20170903
  2. BEPREVE [Suspect]
     Active Substance: BEPOTASTINE BESILATE
     Indication: DACRYOSTENOSIS ACQUIRED

REACTIONS (1)
  - Conjunctival haemorrhage [Recovered/Resolved]

NARRATIVE: CASE EVENT DATE: 20170913
